FAERS Safety Report 4588246-3 (Version None)
Quarter: 2005Q1

REPORT INFORMATION
  Report Type: 
  Country: None (occurrence: None)
  Receive Date: 20050221
  Receipt Date: 20050211
  Transmission Date: 20050727
  Serious: Yes (Hospitalization)
  Sender: FDA-Public Use
  Company Number: AT-ABBOTT-05P-009-0290364-00

PATIENT
  Age: 42 Year
  Sex: Male

DRUGS (4)
  1. DEPAKENE [Suspect]
     Indication: BIPOLAR DISORDER
     Route: 048
     Dates: start: 20041030
  2. OLANZAPINE [Suspect]
     Indication: BIPOLAR DISORDER
     Route: 048
     Dates: start: 20041030, end: 20041210
  3. OLANZAPINE [Suspect]
     Route: 048
     Dates: start: 20050114
  4. ZOLPIDEM TARTRATE [Concomitant]
     Indication: BIPOLAR DISORDER
     Route: 048
     Dates: start: 20041030, end: 20041210

REACTIONS (1)
  - PULMONARY EMBOLISM [None]
